FAERS Safety Report 12258256 (Version 2)
Quarter: 2016Q2

REPORT INFORMATION
  Report Type: Spontaneous
  Country: EG (occurrence: EG)
  Receive Date: 20160412
  Receipt Date: 20160413
  Transmission Date: 20160815
  Serious: Yes (Death)
  Sender: FDA-Public Use
  Company Number: EG-PFIZER INC-2016205270

PATIENT
  Sex: Female

DRUGS (2)
  1. ZYVOX [Suspect]
     Active Substance: LINEZOLID
     Indication: PNEUMONIA
     Dosage: 600 MG, EVERY 12 HOURS
     Route: 042
  2. HEPARIN [Concomitant]
     Active Substance: HEPARIN SODIUM
     Indication: DEEP VEIN THROMBOSIS
     Dosage: UNK

REACTIONS (2)
  - Death [Fatal]
  - Thrombocytopenia [Unknown]
